FAERS Safety Report 10365960 (Version 1)
Quarter: 2014Q3

REPORT INFORMATION
  Report Type: Spontaneous
  Country: US (occurrence: None)
  Receive Date: 20140805
  Receipt Date: 20140805
  Transmission Date: 20150326
  Serious: No
  Sender: FDA-Public Use
  Company Number: None

PATIENT
  Age: 32 Year
  Sex: Male
  Weight: 86.18 kg

DRUGS (3)
  1. FOCALIN [Suspect]
     Active Substance: DEXMETHYLPHENIDATE HYDROCHLORIDE
     Dosage: 2 PILLS THREE TIMES DAILY TAKEN BY MOUTH
     Route: 048
  2. FOCALIN [Suspect]
     Active Substance: DEXMETHYLPHENIDATE HYDROCHLORIDE
     Indication: SOCIAL PROBLEM
     Dosage: 2 PILLS THREE TIMES DAILY TAKEN BY MOUTH
     Route: 048
  3. FOCALIN [Suspect]
     Active Substance: DEXMETHYLPHENIDATE HYDROCHLORIDE
     Indication: ATTENTION DEFICIT/HYPERACTIVITY DISORDER
     Dosage: 2 PILLS THREE TIMES DAILY TAKEN BY MOUTH
     Route: 048

REACTIONS (4)
  - Food interaction [None]
  - Product substitution issue [None]
  - Potentiating drug interaction [None]
  - Product quality issue [None]

NARRATIVE: CASE EVENT DATE: 20140501
